FAERS Safety Report 21410887 (Version 1)
Quarter: 2022Q4

REPORT INFORMATION
  Report Type: Spontaneous
  Country: US (occurrence: None)
  Receive Date: 20221004
  Receipt Date: 20221004
  Transmission Date: 20230112
  Serious: Yes (Other)
  Sender: FDA-Public Use
  Company Number: None

PATIENT
  Age: 52 Year
  Sex: Female
  Weight: 72 kg

DRUGS (6)
  1. TALTZ [Suspect]
     Active Substance: IXEKIZUMAB
     Indication: Psoriasis
     Dosage: OTHER QUANTITY : 1 INJECTION(S);?OTHER FREQUENCY : EVERY 2 WEEKS;?
     Route: 058
     Dates: start: 20220913, end: 20220928
  2. Metoprolol 25 mg [Concomitant]
  3. HCTZ dly [Concomitant]
  4. Zyrtect 10mg BID [Concomitant]
  5. VIT-C [Concomitant]
  6. VITAMIN D NOS [Concomitant]
     Active Substance: VITAMIN D NOS

REACTIONS (8)
  - Palpitations [None]
  - Dizziness [None]
  - Tremor [None]
  - Cardiac flutter [None]
  - Myocardial infarction [None]
  - Hypertension [None]
  - Loss of consciousness [None]
  - Fear [None]

NARRATIVE: CASE EVENT DATE: 20221004
